FAERS Safety Report 17977305 (Version 2)
Quarter: 2020Q3

REPORT INFORMATION
  Report Type: Report from Study
  Country: None (occurrence: US)
  Receive Date: 20200702
  Receipt Date: 20200814
  Transmission Date: 20201103
  Serious: Yes (Hospitalization)
  Sender: FDA-Public Use
  Company Number: US-ABBVIE-20K-163-3468230-00

PATIENT
  Sex: Male

DRUGS (1)
  1. VENCLEXTA [Suspect]
     Active Substance: VENETOCLAX
     Indication: ACUTE MYELOID LEUKAEMIA
     Route: 048
     Dates: start: 20200611, end: 20200617

REACTIONS (5)
  - White blood cell count decreased [Unknown]
  - Delusion [Unknown]
  - Neutrophil count abnormal [Unknown]
  - Asthenia [Unknown]
  - Pyrexia [Unknown]

NARRATIVE: CASE EVENT DATE: 2020
